FAERS Safety Report 9441925 (Version 2)
Quarter: 2013Q3

REPORT INFORMATION
  Report Type: Spontaneous
  Country: CH (occurrence: None)
  Receive Date: 20130801
  Receipt Date: 20130812
  Transmission Date: 20140515
  Serious: Yes (Hospitalization)
  Sender: FDA-Public Use
  Company Number: 20130353

PATIENT
  Sex: Female
  Weight: 75 kg

DRUGS (4)
  1. VENOFER [Suspect]
     Indication: ANAEMIA
     Dosage: 5 AMPOULES IN 500 ML, NACL INTRAVENOUS DRIP
     Route: 041
     Dates: start: 20130511
  2. SODIUM CHLORIDE [Concomitant]
  3. PERFALGAN [Concomitant]
  4. CEFRADINE [Concomitant]

REACTIONS (6)
  - Hypersensitivity [None]
  - Anaphylactic reaction [None]
  - Micturition urgency [None]
  - Paraesthesia [None]
  - Hypokinesia [None]
  - Rash [None]
